FAERS Safety Report 9925858 (Version 1)
Quarter: 2014Q1

REPORT INFORMATION
  Report Type: Spontaneous
  Country: JP (occurrence: JP)
  Receive Date: 20140226
  Receipt Date: 20140226
  Transmission Date: 20141002
  Serious: Yes (Other)
  Sender: FDA-Public Use
  Company Number: JP-SA-2014SA021874

PATIENT
  Age: 83 Year
  Sex: Male

DRUGS (1)
  1. DOCETAXEL [Suspect]
     Indication: PROSTATE CANCER
     Route: 065

REACTIONS (3)
  - Macular oedema [Not Recovered/Not Resolved]
  - Visual acuity reduced [Not Recovered/Not Resolved]
  - Corneal disorder [Recovered/Resolved]
